FAERS Safety Report 11569609 (Version 1)
Quarter: 2015Q3

REPORT INFORMATION
  Report Type: Spontaneous
  Country: US (occurrence: US)
  Receive Date: 20150929
  Receipt Date: 20150929
  Transmission Date: 20151125
  Serious: No
  Sender: FDA-Public Use
  Company Number: US-SHIONOGI, INC-2015000545

PATIENT
  Age: 72 Year
  Sex: Female

DRUGS (3)
  1. OSPHENA [Suspect]
     Active Substance: OSPEMIFENE
     Indication: CYSTITIS
     Dosage: 60 MG, QD
     Route: 065
  2. OSPHENA [Suspect]
     Active Substance: OSPEMIFENE
     Indication: OFF LABEL USE
  3. OSPHENA [Suspect]
     Active Substance: OSPEMIFENE
     Indication: VAGINAL INFECTION

REACTIONS (3)
  - No adverse event [Unknown]
  - Therapeutic response unexpected [Unknown]
  - Off label use [Unknown]
